FAERS Safety Report 9230732 (Version 1)
Quarter: 2013Q2

REPORT INFORMATION
  Report Type: Spontaneous
  Country: UA (occurrence: None)
  Receive Date: 20130411
  Receipt Date: 20130411
  Transmission Date: 20140414
  Serious: Yes (Life-Threatening)
  Sender: FDA-Public Use
  Company Number: GER/UKI/13/0028955

PATIENT
  Age: 30 Year
  Sex: Male

DRUGS (1)
  1. FINASTERIDE (FINASTERIDE) [Suspect]
     Indication: ALOPECIA
     Route: 048
     Dates: start: 20070401, end: 20070801

REACTIONS (4)
  - Testis cancer [None]
  - Testicular pain [None]
  - Blood cortisol decreased [None]
  - Blood testosterone decreased [None]
